FAERS Safety Report 9343356 (Version 2)
Quarter: 2014Q1

REPORT INFORMATION
  Report Type: Report from Study
  Country: GB (occurrence: GB)
  Receive Date: 20130612
  Receipt Date: 20140218
  Transmission Date: 20141002
  Serious: Yes (Death, Other)
  Sender: FDA-Public Use
  Company Number: GB-ROCHE-1235885

PATIENT
  Age: 85 Year
  Sex: Female

DRUGS (4)
  1. LUCENTIS [Suspect]
     Indication: PRODUCT USED FOR UNKNOWN INDICATION
     Route: 050
     Dates: start: 20091027
  2. LUCENTIS [Suspect]
     Route: 050
     Dates: start: 20120727
  3. SIMVASTATIN [Concomitant]
     Indication: BLOOD CHOLESTEROL INCREASED
  4. BISOPROLOL [Concomitant]
     Indication: HYPERTENSION

REACTIONS (3)
  - Death [Fatal]
  - Atrial fibrillation [Unknown]
  - Left ventricular failure [Unknown]
